FAERS Safety Report 6471227-2 (Version None)
Quarter: 2009Q4

REPORT INFORMATION
  Report Type: 
  Country: None (occurrence: None)
  Receive Date: 20091203
  Receipt Date: 20080312
  Transmission Date: 20100525
  Serious: No
  Sender: FDA-Public Use
  Company Number: IN-ELI_LILLY_AND_COMPANY-IN200802003440

PATIENT

DRUGS (3)
  1. EXENATIDE [Suspect]
     Indication: TYPE 2 DIABETES MELLITUS
     Dosage: 5 UG, UNKNOWN
     Route: 065
     Dates: start: 20080101, end: 20080101
  2. RAMIPRIL [Concomitant]
     Indication: HYPERTENSION
     Dosage: UNK, UNKNOWN
     Route: 065
  3. GLICLAZIDE [Concomitant]
     Dosage: 80 MG, 3/D
     Route: 048

REACTIONS (1)
  - VOMITING [None]
